FAERS Safety Report 12998375 (Version 1)
Quarter: 2016Q4

REPORT INFORMATION
  Report Type: Spontaneous
  Country: GB (occurrence: GB)
  Receive Date: 20161205
  Receipt Date: 20161205
  Transmission Date: 20170207
  Serious: Yes (Other)
  Sender: FDA-Public Use
  Company Number: GB-BAYER-2016-230051

PATIENT
  Age: 25 Year
  Sex: Male
  Weight: 67 kg

DRUGS (1)
  1. NAPROXEN SODIUM ({= 220 MG) [Suspect]
     Active Substance: NAPROXEN SODIUM
     Indication: MYOSITIS
     Dosage: 500 MG, BID
     Route: 048
     Dates: start: 20161114

REACTIONS (5)
  - Malaise [None]
  - Somnolence [Unknown]
  - Headache [None]
  - Dizziness [None]
  - Hypoaesthesia [Unknown]

NARRATIVE: CASE EVENT DATE: 20161114
